FAERS Safety Report 7592317-7 (Version None)
Quarter: 2011Q3

REPORT INFORMATION
  Report Type: 
  Country: None (occurrence: None)
  Receive Date: 20110706
  Receipt Date: 20110623
  Transmission Date: 20111222
  Serious: Yes (Hospitalization)
  Sender: FDA-Public Use
  Company Number: US-JNJFOC-20110611428

PATIENT
  Sex: Female
  Weight: 98.88 kg

DRUGS (8)
  1. PREVACID [Concomitant]
  2. TRAMADOL HCL [Concomitant]
  3. FOLIC ACID [Concomitant]
  4. CALCIUM CARBONATE [Concomitant]
  5. REMICADE [Suspect]
     Route: 042
     Dates: start: 20100701, end: 20101116
  6. VITAMIN D [Concomitant]
  7. REMICADE [Suspect]
     Indication: RHEUMATOID ARTHRITIS
     Route: 042
     Dates: start: 20110505, end: 20110616
  8. ZOFRAN [Concomitant]

REACTIONS (6)
  - PRURITUS [None]
  - ULCER [None]
  - GASTRIC DISORDER [None]
  - LIP SWELLING [None]
  - WHEEZING [None]
  - INFUSION RELATED REACTION [None]
